FAERS Safety Report 7894052-4 (Version None)
Quarter: 2011Q4

REPORT INFORMATION
  Report Type: 
  Country: None (occurrence: None)
  Receive Date: 20111104
  Receipt Date: 20111101
  Transmission Date: 20120403
  Serious: Yes (Hospitalization, Other)
  Sender: FDA-Public Use
  Company Number: CA-ABBOTT-11P-028-0870623-00

PATIENT
  Sex: Male

DRUGS (1)
  1. LUPRON DEPOT [Suspect]
     Indication: PROSTATE CANCER
     Dates: start: 20090704

REACTIONS (6)
  - PROSTATE CANCER METASTATIC [None]
  - OSTEOPOROSIS [None]
  - ASTHENIA [None]
  - SPINAL FRACTURE [None]
  - BACK PAIN [None]
  - DECREASED APPETITE [None]
